FAERS Safety Report 6711268-0 (Version None)
Quarter: 2010Q2

REPORT INFORMATION
  Report Type: 
  Country: None (occurrence: None)
  Receive Date: 20100505
  Receipt Date: 20100423
  Transmission Date: 20101027
  Serious: Yes (Other)
  Sender: FDA-Public Use
  Company Number: US-WYE-H14810610

PATIENT
  Sex: Male
  Weight: 74.91 kg

DRUGS (1)
  1. XYNTHA [Suspect]
     Indication: HAEMOPHILIA
     Dosage: UNKNOWN
     Dates: start: 20100301

REACTIONS (1)
  - DRUG INEFFECTIVE [None]
